FAERS Safety Report 4484200-0 (Version None)
Quarter: 2004Q4

REPORT INFORMATION
  Report Type: 
  Country: None (occurrence: None)
  Receive Date: 20041025
  Receipt Date: 20040518
  Transmission Date: 20050328
  Serious: Yes (Hospitalization)
  Sender: FDA-Public Use
  Company Number: FR-BRISTOL-MYERS SQUIBB COMPANY-12589370

PATIENT
  Age: 49 Year
  Sex: Female
  Weight: 65 kg

DRUGS (3)
  1. CISPLATIN [Suspect]
     Indication: BLADDER CANCER
     Dates: start: 20040405, end: 20040405
  2. TAXOL [Suspect]
     Indication: BLADDER CANCER
     Dosage: THERAPY DATES: 05-APR-2004 TO 14-APR-2004;  CUMULATIVE 260 MG
     Dates: start: 20040414, end: 20040414
  3. GEMCITABINE [Suspect]
     Indication: BLADDER CANCER
     Dosage: THERAPY DATES: 05-APR-2004 TO 14-APR-2004;  CUMULATIVE 3400 MG
     Dates: start: 20040414, end: 20040414

REACTIONS (1)
  - SEPSIS [None]
